FAERS Safety Report 7769226-3 (Version None)
Quarter: 2011Q3

REPORT INFORMATION
  Report Type: 
  Country: None (occurrence: None)
  Receive Date: 20110922
  Receipt Date: 20110912
  Transmission Date: 20111222
  Serious: Yes (Hospitalization, Disabling, Other)
  Sender: FDA-Public Use
  Company Number: US-ROCHE-796913

PATIENT
  Sex: Male
  Weight: 70.6 kg

DRUGS (46)
  1. ATROPINE SULFATE 1% [Concomitant]
  2. ATROPINE SULFATE 1% [Concomitant]
     Dates: end: 20110712
  3. HYDROCODONE [Concomitant]
     Indication: PAIN
     Dosage: DOSE: 6 HOURLY
     Route: 048
  4. MINERALS NOS/MULTIVITAMINS NOS [Concomitant]
     Route: 048
     Dates: end: 20110423
  5. POLYETHYLENE GLYCOL [Concomitant]
     Dosage: 1 HEAPING TABLESPOONFUL EVERY DAY AS NEEDED MIX IN 8 OUNCES OF LIQUID.
     Route: 048
  6. POVIDONE-IODINE OINTMENT [Concomitant]
     Dosage: DOSAGE: SMALL AMOUNT EVERY DAY AT AFFECTED AREA
  7. SIMVASTATIN [Concomitant]
     Dosage: AT BEDTIME
     Route: 048
  8. ASPIRIN [Concomitant]
     Route: 048
  9. AMLODIPINE [Concomitant]
     Route: 048
  10. NOVOLIN 70/30 [Concomitant]
     Dosage: DOSAGE: SLIDING SCALE, BEFORE MEALS AND AT BED TIME
     Route: 058
  11. LANTUS [Concomitant]
     Dosage: AT BED TIME
     Route: 058
     Dates: end: 20110613
  12. FLUCONAZOLE [Concomitant]
     Route: 048
     Dates: end: 20110712
  13. ASPIRIN [Concomitant]
     Dosage: DOSE AT NOON
     Route: 048
     Dates: end: 20100430
  14. AMLODIPINE [Concomitant]
     Route: 048
     Dates: end: 20100423
  15. AMOXICILLIN [Concomitant]
     Route: 048
     Dates: end: 20110712
  16. PREDNISOLONE OPHTHALMIC [Concomitant]
     Dosage: DRUG REPORTED: PREDNISOLONE OPTH SUSP 1%
  17. AMIODARONE HCL [Concomitant]
     Route: 048
  18. DOCUSATE [Concomitant]
     Dosage: AT BED TIME
     Route: 048
     Dates: end: 20110712
  19. CITALOPRAM HYDROBROMIDE [Concomitant]
     Route: 048
     Dates: end: 20100423
  20. CARVEDILOL [Concomitant]
     Route: 048
  21. FINASTERIDE [Concomitant]
     Dosage: AT BED TIME
     Route: 048
  22. OMEPRAZOLE [Concomitant]
     Dosage: EVERY DAY BEFORE BREAKFAST
     Route: 048
  23. PREDNISOLONE OPHTHALMIC [Concomitant]
     Dosage: EVERY 6 HOURLY
     Dates: end: 20110712
  24. DORZOLAMIDE HYDROCHLORIDE AND TIMOLOL MALEATE [Concomitant]
     Indication: GLAUCOMA
     Dosage: DORZOLAMIDE 2% /TIMOLOL 0.5%
  25. CEPHALEXIN [Concomitant]
     Indication: INFECTION
     Dosage: DOSE: 6 HOURLY
     Route: 048
  26. LISINOPRIL [Concomitant]
     Route: 048
     Dates: end: 20110613
  27. HYDROCHLOROTHIAZIDE [Concomitant]
     Route: 048
     Dates: end: 20100423
  28. LANTUS [Concomitant]
     Dosage: AT BED TIME
     Route: 058
  29. CARVEDILOL [Concomitant]
     Route: 048
     Dates: end: 20110613
  30. AVASTIN [Suspect]
     Indication: MACULAR DEGENERATION
     Dosage: DOSE: 1.25 MG/0.05ML EVERY 4-6 WEEKS
     Route: 031
     Dates: start: 20100824, end: 20110329
  31. SIMVASTATIN [Concomitant]
     Dosage: EVERY EVENING
     Route: 048
  32. AMIODARONE HCL [Concomitant]
     Route: 048
  33. WARFARIN SODIUM [Concomitant]
     Dosage: DOSE AT BEDTIME
     Route: 048
  34. ZINC OXIDE OINTMENT [Concomitant]
     Dosage: DOSAGE: AT LIBERAL AMOUNT ON AFFECTED AREA
     Route: 050
     Dates: end: 20110317
  35. RISPERIDONE [Concomitant]
     Dosage: EVERY 8 HOURLY
     Route: 048
     Dates: end: 20110613
  36. POLYETHYLENE GLYCOL [Concomitant]
     Dosage: 1 HEAPING TABLESPOONFUL EVERY DAY AS NEEDED MIX IN 8 OUNCES OF LIQUID.
     Route: 048
     Dates: end: 20110712
  37. HYDROCHLOROTHIAZIDE [Concomitant]
     Dosage: BEFORE BREAKFAST
     Route: 048
  38. DOCUSATE [Concomitant]
     Route: 048
     Dates: end: 20100423
  39. DOCUSATE [Concomitant]
     Route: 048
     Dates: end: 20110317
  40. GALANTAMINE HYDROBROMIDE [Concomitant]
     Dosage: WITH BREATKFAST AND SUPPER
     Route: 048
     Dates: end: 20110613
  41. OLANZAPINE [Concomitant]
     Dosage: SCHEDULE: EVERY DAY AS NEEDED
     Route: 030
     Dates: end: 20110712
  42. ALBUTEROL [Concomitant]
     Dosage: 1 PUFF EVERY 4 HOURS AS NEEDED
     Route: 055
     Dates: end: 20100423
  43. LISINOPRIL [Concomitant]
     Route: 048
     Dates: end: 20100423
  44. MIRTAZAPINE [Concomitant]
     Dosage: AT BEDTIME
     Route: 048
     Dates: end: 20100413
  45. TAMSULOSIN HCL [Concomitant]
     Route: 048
  46. RISPERIDONE [Concomitant]
     Dosage: EVERY EVENING
     Route: 048

REACTIONS (11)
  - PAIN [None]
  - HAEMORRHAGE [None]
  - BRAIN INJURY [None]
  - ALPHA HAEMOLYTIC STREPTOCOCCAL INFECTION [None]
  - INJECTION SITE INFECTION [None]
  - PRODUCT QUALITY ISSUE [None]
  - BLINDNESS [None]
  - MENTAL STATUS CHANGES [None]
  - PRODUCT CONTAMINATION MICROBIAL [None]
  - MENINGITIS [None]
  - MENINGOENCEPHALITIS BACTERIAL [None]
